FAERS Safety Report 23327786 (Version 4)
Quarter: 2024Q2

REPORT INFORMATION
  Report Type: Spontaneous
  Country: US (occurrence: US)
  Receive Date: 20231221
  Receipt Date: 20240415
  Transmission Date: 20240715
  Serious: Yes (Hospitalization, Other)
  Sender: FDA-Public Use
  Company Number: US-BRISTOL-MYERS SQUIBB COMPANY-2023-184464

PATIENT
  Age: 88 Year
  Sex: Female
  Weight: 43.09 kg

DRUGS (1)
  1. REVLIMID [Suspect]
     Active Substance: LENALIDOMIDE
     Indication: Plasma cell myeloma
     Dosage: 2WKS ON, 1 W OFF
     Route: 048
     Dates: start: 20230510

REACTIONS (7)
  - Femur fracture [Unknown]
  - Fall [Unknown]
  - Off label use [Unknown]
  - Cardiac disorder [Unknown]
  - Fatigue [Unknown]
  - Decreased appetite [Unknown]
  - Product dose omission issue [Unknown]

NARRATIVE: CASE EVENT DATE: 20231201
